FAERS Safety Report 10327864 (Version 1)
Quarter: 2014Q3

REPORT INFORMATION
  Report Type: Spontaneous
  Country: CH (occurrence: CH)
  Receive Date: 20140721
  Receipt Date: 20140721
  Transmission Date: 20150326
  Serious: Yes (Hospitalization)
  Sender: FDA-Public Use
  Company Number: CH-009507513-1407CHE007561

PATIENT
  Age: 70 Year
  Sex: Male

DRUGS (12)
  1. ZYMAFLUOR [Concomitant]
     Active Substance: SODIUM FLUORIDE
  2. AKINETON [Suspect]
     Active Substance: BIPERIDEN HYDROCHLORIDE
     Indication: AKINESIA
     Dosage: UNK, DAILY DOSE 4 MG,ONCE DAILY
     Route: 048
     Dates: start: 2014, end: 20140402
  3. VI-DE-3-HYDROSOL [Concomitant]
  4. REMERON [Suspect]
     Active Substance: MIRTAZAPINE
     Dosage: UNK, DAILY DOSE 15 MG, FREQUENCY-HALF A TABLET ONCE DAILY,DAILY DOSAGE-15 MG
     Route: 048
     Dates: start: 2014, end: 20140402
  5. CLOPIN [Suspect]
     Active Substance: CLOPIDOGREL BISULFATE
     Indication: AKINESIA
     Dosage: UNK, DAILY DOSE 12.5 MG, FREQUENCY-HALF A TABLET ONCE DAILY,DAILY DOSAGE-12.5 MG
     Route: 048
     Dates: start: 2014, end: 20140402
  6. PREDNISONE. [Concomitant]
     Active Substance: PREDNISONE
  7. FENTANYL. [Suspect]
     Active Substance: FENTANYL
     Indication: BACK PAIN
     Dosage: FORMULATION-PATCH,FREQUENCY-1 PER 3DAYS
     Route: 062
     Dates: start: 201403, end: 201404
  8. BILOL [Concomitant]
     Active Substance: BISOPROLOL
  9. DAFALGAN [Concomitant]
     Active Substance: ACETAMINOPHEN
  10. MADOPAR [Concomitant]
     Active Substance: BENSERAZIDE HYDROCHLORIDE\LEVODOPA
     Route: 048
  11. TORASEM [Concomitant]
     Active Substance: TORSEMIDE
  12. DUPHALAC [Concomitant]
     Active Substance: LACTULOSE

REACTIONS (3)
  - Delirium [Recovered/Resolved]
  - Aggression [Recovered/Resolved]
  - Confusional state [Recovered/Resolved]

NARRATIVE: CASE EVENT DATE: 201403
